FAERS Safety Report 4297523-5 (Version None)
Quarter: 2004Q1

REPORT INFORMATION
  Report Type: 
  Country: None (occurrence: None)
  Receive Date: 20040213
  Receipt Date: 20040209
  Transmission Date: 20041129
  Serious: Yes (Hospitalization)
  Sender: FDA-Public Use
  Company Number: 138227USA

PATIENT
  Age: 13 Month
  Sex: Male
  Weight: 9.0719 kg

DRUGS (1)
  1. AMOXICILLIN [Suspect]
     Indication: EAR INFECTION
     Dosage: 400 MILLIGRAM BID ORAL
     Route: 048
     Dates: start: 20040203, end: 20040207

REACTIONS (2)
  - DERMATITIS DIAPER [None]
  - DYSURIA [None]
